FAERS Safety Report 20385391 (Version 1)
Quarter: 2022Q1

REPORT INFORMATION
  Report Type: Spontaneous
  Country: US (occurrence: None)
  Receive Date: 20220127
  Receipt Date: 20220127
  Transmission Date: 20220423
  Serious: Yes (Other)
  Sender: FDA-Public Use
  Company Number: None

PATIENT
  Age: 67 Year
  Sex: Female
  Weight: 69 kg

DRUGS (18)
  1. VOTRIENT [Suspect]
     Active Substance: PAZOPANIB HYDROCHLORIDE
     Indication: Renal cancer
     Dosage: FREQUENCY : DAILY;?
     Route: 048
     Dates: start: 20200106
  2. ASPIRIN [Concomitant]
     Active Substance: ASPIRIN
  3. BUDESONIDE\FORMOTEROL [Concomitant]
     Active Substance: BUDESONIDE\FORMOTEROL
  4. CYANOCOBALAMIN [Concomitant]
     Active Substance: CYANOCOBALAMIN
  5. HYDROCODONE BITARTRATE AND ACETAMINOPHEN [Concomitant]
     Active Substance: ACETAMINOPHEN\HYDROCODONE BITARTRATE
  6. JANUMET [Concomitant]
     Active Substance: METFORMIN HYDROCHLORIDE\SITAGLIPTIN PHOSPHATE
  7. LEVOTHYROXINE [Concomitant]
     Active Substance: LEVOTHYROXINE
  8. LOSARTAN [Concomitant]
     Active Substance: LOSARTAN
  9. LYRICA [Concomitant]
     Active Substance: PREGABALIN
  10. NEFAZODONE [Concomitant]
     Active Substance: NEFAZODONE
  11. NITROGLYCERIN [Concomitant]
     Active Substance: NITROGLYCERIN
  12. ONDANSETRON [Concomitant]
     Active Substance: ONDANSETRON
  13. PRAVASTATIN [Concomitant]
     Active Substance: PRAVASTATIN
  14. PROCHLORPERAZINE [Concomitant]
     Active Substance: PROCHLORPERAZINE
  15. VERAPAMIL [Concomitant]
     Active Substance: VERAPAMIL HYDROCHLORIDE
  16. FLUVOXAMINE [Concomitant]
     Active Substance: FLUVOXAMINE
  17. MAGNESIUM [Concomitant]
     Active Substance: MAGNESIUM
  18. KLOR-CON [Concomitant]
     Active Substance: POTASSIUM CHLORIDE

REACTIONS (1)
  - Disease progression [None]

NARRATIVE: CASE EVENT DATE: 20220127
